FAERS Safety Report 24085281 (Version 1)
Quarter: 2024Q3

REPORT INFORMATION
  Report Type: Spontaneous
  Country: GB (occurrence: GB)
  Receive Date: 20240712
  Receipt Date: 20240712
  Transmission Date: 20241017
  Serious: Yes (Other)
  Sender: COVIS PHARMA
  Company Number: GB-MHRA-TPP16543408C6321580YC1719918475743

PATIENT
  Age: 63 Year
  Sex: Female
  Weight: 70 kg

DRUGS (11)
  1. ACLIDINIUM BROMIDE\FORMOTEROL FUMARATE [Suspect]
     Active Substance: ACLIDINIUM BROMIDE\FORMOTEROL FUMARATE
     Dosage: 340MICROGRAMS/DOSE / 12MICROGRAMS/DOSE. PLEASE RETURN YOUR E...
     Route: 055
     Dates: start: 20240415, end: 20240515
  2. ACOPAIR [Concomitant]
     Indication: Ill-defined disorder
     Dosage: PLEASE RETURN YOUR EM...
     Dates: start: 20240521, end: 20240620
  3. KENALOG [Concomitant]
     Active Substance: TRIAMCINOLONE ACETONIDE
     Indication: Ill-defined disorder
     Dates: start: 20240522, end: 20240619
  4. ANASTROZOLE [Concomitant]
     Active Substance: ANASTROZOLE
     Indication: Ill-defined disorder
     Dates: start: 20230911
  5. ATORVASTATIN [Concomitant]
     Active Substance: ATORVASTATIN
     Indication: Ill-defined disorder
     Dosage: EVERY NIGHT
     Dates: start: 20230911
  6. ESTRIOL [Concomitant]
     Active Substance: ESTRIOL
     Indication: Ill-defined disorder
     Dosage: APPLY AT NIGHT ONCE DAILY FOR THREE WEEKS THEN ...
     Dates: start: 20230911
  7. RAMIPRIL [Concomitant]
     Active Substance: RAMIPRIL
     Indication: Ill-defined disorder
     Dates: start: 20230911
  8. ALBUTEROL [Concomitant]
     Active Substance: ALBUTEROL
     Indication: Ill-defined disorder
     Dosage: TAKE ONE OR TWO PUFFS WHEN REQUIRED FOR BREATHL...
     Dates: start: 20230911
  9. MOMETASONE [Concomitant]
     Active Substance: MOMETASONE
     Indication: Ill-defined disorder
     Dosage: TWO SPRAYS TO EACH NOSTRIL ONCE A DAY, WHEN SYM...
     Dates: start: 20240130
  10. OLODATEROL HYDROCHLORIDE\TIOTROPIUM BROMIDE MONOHYDRATE [Concomitant]
     Active Substance: OLODATEROL HYDROCHLORIDE\TIOTROPIUM BROMIDE MONOHYDRATE
     Indication: Ill-defined disorder
     Dosage: PLEASE RETURN YOUR EMPTY ...
     Dates: start: 20240220, end: 20240702
  11. EASYHALER [Concomitant]
     Indication: Ill-defined disorder
     Dosage: INHALE 1 DOSE TWICE DAILY
     Dates: start: 20240612

REACTIONS (3)
  - Colitis [Recovered/Resolved]
  - Musculoskeletal discomfort [Recovered/Resolved]
  - Headache [Recovered/Resolved]
